FAERS Safety Report 20110736 (Version 1)
Quarter: 2021Q4

REPORT INFORMATION
  Report Type: Spontaneous
  Country: CN (occurrence: CN)
  Receive Date: 20211124
  Receipt Date: 20211124
  Transmission Date: 20220303
  Serious: No
  Sender: FDA-Public Use
  Company Number: CN-JNJFOC-20211129466

PATIENT
  Age: 38 Year
  Sex: Male

DRUGS (1)
  1. INVOKANA [Suspect]
     Active Substance: CANAGLIFLOZIN
     Indication: Diabetes mellitus
     Route: 048
     Dates: start: 20211102, end: 20211107

REACTIONS (1)
  - Urine ketone body present [Recovered/Resolved]

NARRATIVE: CASE EVENT DATE: 20211107
